FAERS Safety Report 17929912 (Version 1)
Quarter: 2020Q2

REPORT INFORMATION
  Report Type: Spontaneous
  Country: CN (occurrence: CN)
  Receive Date: 20200623
  Receipt Date: 20200623
  Transmission Date: 20200714
  Serious: Yes (Other)
  Sender: FDA-Public Use
  Company Number: CN-009507513-2006CHN006758

PATIENT
  Age: 95 Year
  Sex: Male
  Weight: 50 kg

DRUGS (7)
  1. SINGULAIR [Suspect]
     Active Substance: MONTELUKAST SODIUM
     Indication: ASTHMA
     Dosage: 10MG
     Route: 048
     Dates: start: 20200510, end: 20200527
  2. DEXTROSE. [Concomitant]
     Active Substance: DEXTROSE
     Indication: MEDICATION DILUTION
     Dosage: 100ML
     Route: 041
     Dates: start: 20200523, end: 20200525
  3. XUE BI JING ZHU SHE YE [Concomitant]
     Indication: HEAT THERAPY
     Dosage: 50MG
     Route: 041
     Dates: start: 20200523, end: 20200525
  4. SODIUM CHLORIDE. [Concomitant]
     Active Substance: SODIUM CHLORIDE
     Indication: MEDICATION DILUTION
     Dosage: 100ML
     Route: 041
     Dates: start: 20200523, end: 20200525
  5. SULPERAZONE [Suspect]
     Active Substance: CEFOPERAZONE SODIUM\SULBACTAM SODIUM
     Indication: PNEUMONIA
     Dosage: 3G
     Route: 041
     Dates: start: 20200523, end: 20200525
  6. ATORVASTATIN CALCIUM. [Suspect]
     Active Substance: ATORVASTATIN CALCIUM
     Indication: HYPERLIPIDAEMIA
     Dosage: 20MG
     Route: 048
     Dates: start: 20200510, end: 20200527
  7. DEXTROSE. [Concomitant]
     Active Substance: DEXTROSE
     Dosage: 100ML
     Route: 041
     Dates: start: 20200525

REACTIONS (1)
  - Hepatic function abnormal [Recovering/Resolving]

NARRATIVE: CASE EVENT DATE: 20200525
